FAERS Safety Report 4394067-7 (Version None)
Quarter: 2004Q2

REPORT INFORMATION
  Report Type: 
  Country: None (occurrence: None)
  Receive Date: 20040628
  Receipt Date: 20040615
  Transmission Date: 20050107
  Serious: Yes (Death)
  Sender: FDA-Public Use
  Company Number: 2004-02011

PATIENT
  Sex: Female

DRUGS (1)
  1. IMMUCYST (BCG - IT (CONNAUGHT)), AVENTIS PASTEUR LTD., [Suspect]
     Indication: BLADDER CANCER
     Dosage: B.IN., BLADDER

REACTIONS (2)
  - BOVINE TUBERCULOSIS [None]
  - MENINGITIS TUBERCULOUS [None]
